FAERS Safety Report 9748610 (Version 1)
Quarter: 2013Q4

REPORT INFORMATION
  Report Type: Spontaneous
  Country: NL (occurrence: None)
  Receive Date: 20131209
  Receipt Date: 20131209
  Transmission Date: 20140711
  Serious: Yes (Other)
  Sender: FDA-Public Use
  Company Number: 2013NL0476

PATIENT
  Age: 3 Year
  Sex: 0

DRUGS (1)
  1. NITISINONE (NITISINONE) [Suspect]
     Indication: TYROSINAEMIA

REACTIONS (1)
  - Developmental delay [None]
